FAERS Safety Report 9807530 (Version 1)
Quarter: 2014Q1

REPORT INFORMATION
  Report Type: Spontaneous
  Country: US (occurrence: US)
  Receive Date: 20140110
  Receipt Date: 20140110
  Transmission Date: 20141002
  Serious: No
  Sender: FDA-Public Use
  Company Number: US-SANOFI-AVENTIS-2012SA093287

PATIENT
  Sex: Male

DRUGS (2)
  1. PLAVIX [Suspect]
     Route: 065
     Dates: start: 2008, end: 201210
  2. CLOPIDOGREL BISULFATE [Concomitant]

REACTIONS (3)
  - Body temperature decreased [Recovered/Resolved]
  - Blood disorder [Recovered/Resolved]
  - Skin haemorrhage [Recovered/Resolved]
